FAERS Safety Report 6028890-X (Version None)
Quarter: 2008Q4

REPORT INFORMATION
  Report Type: 
  Country: None (occurrence: None)
  Receive Date: 20081231
  Receipt Date: 20081219
  Transmission Date: 20090506
  Serious: Yes (Hospitalization)
  Sender: FDA-Public Use
  Company Number: B0552033A

PATIENT
  Age: 44 Year
  Sex: Female

DRUGS (5)
  1. NIFEDIPINE [Suspect]
     Indication: TOCOLYSIS
     Dosage: ORAL
     Route: 048
  2. NIFEDIPINE [Suspect]
     Indication: TOCOLYSIS
     Dosage: 10 MG / SUBLINGUAL
     Route: 060
  3. ALBUTEROL SULFATE [Suspect]
     Indication: TOCOLYSIS
  4. ATOSIBAN (FORMULATION UNKNOWN) (ATOSIBAN) [Suspect]
     Indication: TOCOLYSIS
  5. FRUSEMIDE (FORMULATION UNKNOWN) (FUROSEMIDE) [Suspect]

REACTIONS (5)
  - DYSPNOEA [None]
  - HYPOXIA [None]
  - PULMONARY OEDEMA [None]
  - RALES [None]
  - SINUS TACHYCARDIA [None]
